FAERS Safety Report 14150265 (Version 3)
Quarter: 2019Q2

REPORT INFORMATION
  Report Type: Spontaneous
  Country: US (occurrence: US)
  Receive Date: 20171101
  Receipt Date: 20190412
  Transmission Date: 20190711
  Serious: Yes (Other)
  Sender: FDA-Public Use
  Company Number: US-PFIZER INC-2017467876

PATIENT
  Age: 72 Year
  Sex: Female

DRUGS (1)
  1. BESPONSA [Suspect]
     Active Substance: INOTUZUMAB OZOGAMICIN
     Indication: ACUTE LYMPHOCYTIC LEUKAEMIA RECURRENT
     Dosage: UNK UNK, 2 DAY 1/DAY 1,8,15 (INFUSION WEEKLY 6 WEEKS)
     Dates: end: 201711

REACTIONS (2)
  - Renal impairment [Unknown]
  - Liver function test increased [Unknown]
